FAERS Safety Report 20023302 (Version 2)
Quarter: 2021Q4

REPORT INFORMATION
  Report Type: Other
  Country: US (occurrence: US)
  Receive Date: 20211102
  Receipt Date: 20211206
  Transmission Date: 20220303
  Serious: Yes (Other)
  Sender: FDA-Public Use
  Company Number: US-NEUROCRINE BIOSCIENCES INC.-2021NBI06174

PATIENT

DRUGS (1)
  1. INGREZZA [Suspect]
     Active Substance: VALBENAZINE
     Indication: Tardive dyskinesia
     Dosage: 80 MILLIGRAM, QD (DAILY)
     Route: 048
     Dates: start: 2021, end: 2021

REACTIONS (2)
  - Blindness [Unknown]
  - Dyskinesia [Unknown]

NARRATIVE: CASE EVENT DATE: 20210101
